FAERS Safety Report 19191772 (Version 1)
Quarter: 2021Q2

REPORT INFORMATION
  Report Type: Spontaneous
  Country: FR (occurrence: FR)
  Receive Date: 20210429
  Receipt Date: 20210429
  Transmission Date: 20210717
  Serious: Yes (Other)
  Sender: FDA-Public Use
  Company Number: FR-TEVA-2021-FR-1904939

PATIENT
  Age: 57 Year
  Sex: Male
  Weight: 73 kg

DRUGS (3)
  1. COMIRNATY [Suspect]
     Active Substance: TOZINAMERAN
     Indication: COVID-19 IMMUNISATION
     Dosage: 1 DOSAGE FORMS
     Route: 030
     Dates: start: 20210403, end: 20210403
  2. PACLITAXEL. [Suspect]
     Active Substance: PACLITAXEL
     Indication: BLADDER CANCER STAGE IV
     Dosage: UNSPECIFIED
     Route: 042
     Dates: start: 20210330, end: 20210330
  3. GEMZAR [Suspect]
     Active Substance: GEMCITABINE HYDROCHLORIDE
     Indication: BLADDER CANCER STAGE IV
     Dosage: UNSPECIFIED
     Route: 042
     Dates: start: 20210330, end: 20210330

REACTIONS (1)
  - Deep vein thrombosis [Recovering/Resolving]

NARRATIVE: CASE EVENT DATE: 20210406
